FAERS Safety Report 24706791 (Version 2)
Quarter: 2024Q4

REPORT INFORMATION
  Report Type: Spontaneous
  Country: US (occurrence: US)
  Receive Date: 20241206
  Receipt Date: 20241226
  Transmission Date: 20250114
  Serious: No
  Sender: SIGMAPHARM
  Company Number: US-SIGMAPHARM LABORATORIES, LLC-2024SIG00065

PATIENT
  Sex: Female

DRUGS (1)
  1. UNSPECIFIED INGREDIENT [Suspect]
     Active Substance: UNSPECIFIED INGREDIENT

REACTIONS (1)
  - Hospitalisation [Unknown]
